FAERS Safety Report 9497855 (Version 1)
Quarter: 2013Q3

REPORT INFORMATION
  Report Type: Spontaneous
  Country: GB (occurrence: GB)
  Receive Date: 20130904
  Receipt Date: 20130904
  Transmission Date: 20140515
  Serious: Yes (Other)
  Sender: FDA-Public Use
  Company Number: GB-ROCHE-1269931

PATIENT
  Sex: Male
  Weight: 56 kg

DRUGS (7)
  1. RIBAVIRIN [Suspect]
     Indication: HEPATITIS C
     Route: 065
     Dates: start: 20120920, end: 20130116
  2. RIBAVIRIN [Suspect]
     Route: 065
  3. INCIVO [Suspect]
     Indication: HEPATITIS C
     Route: 048
     Dates: start: 20120920, end: 20130116
  4. PEGINTERFERON ALFA-2B [Concomitant]
     Route: 058
     Dates: start: 20120920
  5. TRUVADA [Concomitant]
     Indication: HIV INFECTION
     Route: 048
  6. RITONAVIR [Concomitant]
     Indication: HIV INFECTION
     Route: 065
  7. CITALOPRAM [Concomitant]
     Indication: DEPRESSION
     Route: 065

REACTIONS (3)
  - Anaemia [Unknown]
  - Syncope [Recovered/Resolved]
  - Drug ineffective [Unknown]
